FAERS Safety Report 24199886 (Version 1)
Quarter: 2024Q3

REPORT INFORMATION
  Report Type: Spontaneous
  Country: GB (occurrence: GB)
  Receive Date: 20240812
  Receipt Date: 20240812
  Transmission Date: 20241017
  Serious: Yes (Other)
  Sender: MYLAN
  Company Number: None

PATIENT
  Age: 15 Year
  Sex: Female

DRUGS (1)
  1. SERTRALINE [Suspect]
     Active Substance: SERTRALINE HYDROCHLORIDE
     Indication: Post-traumatic stress disorder
     Dosage: 50 MILLIGRAM, QD (ONCE A DAY)
     Route: 065
     Dates: start: 20240503, end: 20240508

REACTIONS (5)
  - Lip swelling [Recovering/Resolving]
  - Swelling face [Recovering/Resolving]
  - Ear discomfort [Recovered/Resolved]
  - Rash erythematous [Recovered/Resolved]
  - Vomiting [Unknown]

NARRATIVE: CASE EVENT DATE: 20240505
